FAERS Safety Report 5685097-3 (Version None)
Quarter: 2008Q1

REPORT INFORMATION
  Report Type: 
  Country: None (occurrence: None)
  Receive Date: 20080328
  Receipt Date: 20080318
  Transmission Date: 20080703
  Serious: Yes (Other)
  Sender: FDA-Public Use
  Company Number: US-PFIZER INC-2007078779

PATIENT
  Sex: Male
  Weight: 77.6 kg

DRUGS (5)
  1. MARAVIROC [Suspect]
     Indication: HIV INFECTION
     Route: 048
  2. EPIVIR [Concomitant]
     Route: 048
  3. DARUNAVIR [Concomitant]
     Route: 048
     Dates: start: 20070524
  4. NORVIR [Concomitant]
     Route: 048
     Dates: start: 20070524
  5. RALTEGRAVIR [Concomitant]
     Route: 048

REACTIONS (1)
  - RECTAL CANCER [None]
